FAERS Safety Report 8823527 (Version 1)
Quarter: 2012Q4

REPORT INFORMATION
  Report Type: 
  Country: US (occurrence: US)
  Receive Date: 20121003
  Receipt Date: 20121003
  Transmission Date: 20130627
  Serious: No
  Sender: FDA-Public Use
  Company Number: US-VERTEX PHARMACEUTICAL INC.-2012-021118

PATIENT

DRUGS (2)
  1. KALYDECO [Suspect]
     Indication: CYSTIC FIBROSIS
  2. INSULIN [Concomitant]
     Indication: CYSTIC FIBROSIS RELATED DIABETES

REACTIONS (1)
  - Blood glucose increased [Unknown]
